FAERS Safety Report 7278260-1 (Version None)
Quarter: 2011Q1

REPORT INFORMATION
  Report Type: 
  Country: None (occurrence: None)
  Receive Date: 20110202
  Receipt Date: 20110202
  Transmission Date: 20110831
  Serious: Yes (Hospitalization)
  Sender: FDA-Public Use
  Company Number: None

PATIENT
  Age: 83 Year
  Sex: Female
  Weight: 68 kg

DRUGS (4)
  1. ESICTALOPRAM 10 MG [Suspect]
     Indication: DEPRESSION
     Dosage: 10 MG DAILY PO
     Route: 048
  2. VITAMIN D [Concomitant]
  3. IBANDRONATE SODIUM [Concomitant]
  4. METHIMAZOLE [Concomitant]

REACTIONS (3)
  - FLUID OVERLOAD [None]
  - HYPONATRAEMIA [None]
  - NAUSEA [None]
